FAERS Safety Report 10172564 (Version 9)
Quarter: 2016Q1

REPORT INFORMATION
  Report Type: Spontaneous
  Country: IT (occurrence: IT)
  Receive Date: 20140515
  Receipt Date: 20160304
  Transmission Date: 20160525
  Serious: Yes (Other)
  Sender: FDA-Public Use
  Company Number: IT-AMGEN-ITASP2014031588

PATIENT
  Age: 19 Year
  Sex: Male
  Weight: 27.21 kg

DRUGS (1)
  1. NPLATE [Suspect]
     Active Substance: ROMIPLOSTIM
     Indication: IMMUNE THROMBOCYTOPENIC PURPURA
     Dosage: 9 MUG/KG, QWK
     Route: 058
     Dates: start: 20130612, end: 20140416

REACTIONS (10)
  - Skin reaction [Recovered/Resolved]
  - Neutralising antibodies positive [Unknown]
  - Erythema [Unknown]
  - Therapeutic response decreased [Unknown]
  - Rash generalised [Unknown]
  - Non-neutralising antibodies positive [Not Recovered/Not Resolved]
  - Rash [Unknown]
  - Generalised erythema [Recovered/Resolved]
  - Pruritus generalised [Recovered/Resolved]
  - Urticaria [Recovered/Resolved]

NARRATIVE: CASE EVENT DATE: 20140416
